FAERS Safety Report 4701440-3 (Version None)
Quarter: 2005Q2

REPORT INFORMATION
  Report Type: 
  Country: None (occurrence: None)
  Receive Date: 20050628
  Receipt Date: 20050616
  Transmission Date: 20051028
  Serious: Yes (Hospitalization)
  Sender: FDA-Public Use
  Company Number: DE-JNJFOC-20050604529

PATIENT
  Sex: Female

DRUGS (2)
  1. DURAGESIC-100 [Suspect]
     Route: 062
  2. ESPRENIT [Concomitant]
     Route: 049

REACTIONS (2)
  - FATIGUE [None]
  - INTERVERTEBRAL DISC PROTRUSION [None]
